FAERS Safety Report 8903231 (Version 1)
Quarter: 2012Q4

REPORT INFORMATION
  Report Type: 
  Country: US (occurrence: US)
  Receive Date: 20121113
  Receipt Date: 20121113
  Transmission Date: 20130627
  Serious: Yes (Other)
  Sender: FDA-Public Use
  Company Number: US-PFIZER INC-2012281118

PATIENT
  Age: 53 Year
  Sex: Male
  Weight: 74.83 kg

DRUGS (2)
  1. CHANTIX [Suspect]
     Indication: SMOKING CESSATION THERAPY
     Dosage: UNK
     Dates: start: 20120704, end: 20120905
  2. AMOXICILLIN [Suspect]
     Indication: TOOTH ABSCESS
     Dosage: UNK
     Dates: end: 2012

REACTIONS (4)
  - Tooth abscess [Unknown]
  - Anxiety [Not Recovered/Not Resolved]
  - Bruxism [Not Recovered/Not Resolved]
  - Muscle tightness [Not Recovered/Not Resolved]
